FAERS Safety Report 8227102-6 (Version None)
Quarter: 2012Q1

REPORT INFORMATION
  Report Type: 
  Country: None (occurrence: None)
  Receive Date: 20120322
  Receipt Date: 20120314
  Transmission Date: 20120608
  Serious: Yes (Hospitalization)
  Sender: FDA-Public Use
  Company Number: JP-JNJFOC-20120104727

PATIENT
  Age: 67 Year
  Sex: Male
  Weight: 73 kg

DRUGS (8)
  1. REMICADE [Suspect]
     Route: 042
     Dates: start: 20111014
  2. PREDNISOLONE [Suspect]
     Indication: RHEUMATOID ARTHRITIS
     Route: 048
     Dates: end: 20120108
  3. REMICADE [Suspect]
     Indication: PUSTULAR PSORIASIS
     Route: 042
     Dates: start: 20111125
  4. REMICADE [Suspect]
     Dosage: 3RD DOSE
     Route: 042
     Dates: start: 20111028
  5. METHOTREXATE [Suspect]
     Indication: RHEUMATOID ARTHRITIS
     Route: 048
     Dates: start: 20111104, end: 20120107
  6. REBAMIPIDE [Concomitant]
     Indication: RHEUMATOID ARTHRITIS
     Route: 048
  7. CELECOXIB [Concomitant]
     Indication: RHEUMATOID ARTHRITIS
     Route: 048
  8. CEFAZOLIN SODIUM [Concomitant]
     Indication: GASTROENTERITIS
     Dosage: 3 TABLETS
     Route: 048

REACTIONS (1)
  - PNEUMOCYSTIS JIROVECI PNEUMONIA [None]
